FAERS Safety Report 22274647 (Version 3)
Quarter: 2023Q2

REPORT INFORMATION
  Report Type: Report from Study
  Country: US (occurrence: US)
  Receive Date: 20230502
  Receipt Date: 20230623
  Transmission Date: 20230722
  Serious: Yes (Death, Hospitalization)
  Sender: FDA-Public Use
  Company Number: US-002147023-NVSC2023US095495

PATIENT
  Sex: Female

DRUGS (1)
  1. KISQALI [Suspect]
     Active Substance: RIBOCICLIB
     Indication: Product used for unknown indication
     Dosage: UNK
     Route: 065

REACTIONS (7)
  - Platelet count decreased [Fatal]
  - Dysphagia [Fatal]
  - Acute respiratory failure [Fatal]
  - Full blood count decreased [Unknown]
  - Weight decreased [Unknown]
  - Malnutrition [Unknown]
  - Dehydration [Unknown]
